FAERS Safety Report 8116501-9 (Version None)
Quarter: 2012Q1

REPORT INFORMATION
  Report Type: 
  Country: None (occurrence: None)
  Receive Date: 20120206
  Receipt Date: 20120127
  Transmission Date: 20120608
  Serious: Yes (Other)
  Sender: FDA-Public Use
  Company Number: US-BAYER-201032785NA

PATIENT
  Age: 30 Year
  Sex: Female
  Weight: 54 kg

DRUGS (7)
  1. NEXIUM [Concomitant]
     Route: 048
  2. NAPROXEN SODIUM [Concomitant]
     Dates: start: 20070101
  3. PREVACID [Concomitant]
  4. IBUPROFEN (ADVIL) [Concomitant]
     Indication: PAIN
     Dosage: 2 TABLETS EVERY 6 HOURS
     Dates: start: 20081201
  5. ACETAMINOPHEN [Concomitant]
     Indication: HEADACHE
     Dosage: 2 TABLETS EVERY 6 HOURS
     Dates: start: 20081201
  6. YAZ [Suspect]
     Indication: CONTRACEPTION
     Route: 048
     Dates: start: 20070601, end: 20080601
  7. REGLAN [Concomitant]
     Indication: NAUSEA
     Dosage: UNK
     Route: 048
     Dates: start: 20081117

REACTIONS (8)
  - SCAR [None]
  - BILIARY DYSKINESIA [None]
  - CHOLECYSTITIS CHRONIC [None]
  - PSYCHOLOGICAL TRAUMA [None]
  - POST PROCEDURAL INFECTION [None]
  - CHOLESTEROSIS [None]
  - ABDOMINAL PAIN [None]
  - NAUSEA [None]
